FAERS Safety Report 13394764 (Version 4)
Quarter: 2017Q2

REPORT INFORMATION
  Report Type: Report from Study
  Country: FR (occurrence: FR)
  Receive Date: 20170403
  Receipt Date: 20170524
  Transmission Date: 20170830
  Serious: Yes (Death, Hospitalization)
  Sender: FDA-Public Use
  Company Number: FR-ROCHE-1913441

PATIENT
  Age: 78 Year
  Sex: Female
  Weight: 55.5 kg

DRUGS (10)
  1. METHYLPREDNISOLONE. [Concomitant]
     Active Substance: METHYLPREDNISOLONE
  2. DENOSUMAB [Concomitant]
     Active Substance: DENOSUMAB
     Indication: OSTEOPOROSIS
     Route: 065
     Dates: start: 2002
  3. CEFOTAXIME [Concomitant]
     Active Substance: CEFOTAXIME SODIUM
     Route: 065
     Dates: start: 2002
  4. PREDNISOLONE. [Concomitant]
     Active Substance: PREDNISOLONE
     Indication: OEDEMA
     Route: 048
  5. CHLORHYDRATE DE RALOXIFENE [Concomitant]
     Indication: OSTEOPOROSIS
     Route: 065
     Dates: start: 2002
  6. POLARAMINE [Concomitant]
     Active Substance: DEXCHLORPHENIRAMINE MALEATE
     Indication: ANGIOEDEMA
     Route: 065
  7. VEMURAFENIB [Suspect]
     Active Substance: VEMURAFENIB
     Indication: LUNG ADENOCARCINOMA
  8. VEMURAFENIB [Suspect]
     Active Substance: VEMURAFENIB
     Indication: LUNG ADENOCARCINOMA
     Dosage: 4 TABLETS MORNING AND EVENING?MOST RECENT DOSE PRIOR TO FRACTURE OF RIGHT FEMUR ON 13/FEB/2017 (1920
     Route: 048
     Dates: start: 20170128, end: 20170226
  9. SOLU-MEDROL [Concomitant]
     Active Substance: METHYLPREDNISOLONE SODIUM SUCCINATE
     Indication: ANGIOEDEMA
     Route: 065
  10. ADRENALINE [Concomitant]
     Active Substance: EPINEPHRINE
     Indication: ANGIOEDEMA
     Route: 065

REACTIONS (7)
  - Erythrosis [Unknown]
  - Herpes virus infection [Fatal]
  - Femur fracture [Not Recovered/Not Resolved]
  - Pneumonia staphylococcal [Fatal]
  - Escherichia sepsis [Fatal]
  - Rash maculo-papular [Unknown]
  - Infection [Unknown]

NARRATIVE: CASE EVENT DATE: 20170214
